FAERS Safety Report 4369879-6 (Version None)
Quarter: 2004Q2

REPORT INFORMATION
  Report Type: 
  Country: None (occurrence: None)
  Receive Date: 20040526
  Receipt Date: 20040114
  Transmission Date: 20050107
  Serious: Yes (Hospitalization)
  Sender: FDA-Public Use
  Company Number: USA040156668

PATIENT
  Sex: Female

DRUGS (1)
  1. ZYPREXA [Suspect]
     Indication: SEROTONIN SYNDROME
     Dosage: UNK
     Route: 065

REACTIONS (3)
  - DIABETIC COMA [None]
  - FATIGUE [None]
  - HYPERSOMNIA [None]
